FAERS Safety Report 23088875 (Version 1)
Quarter: 2023Q4

REPORT INFORMATION
  Report Type: Spontaneous
  Country: TR (occurrence: TR)
  Receive Date: 20231020
  Receipt Date: 20231020
  Transmission Date: 20240110
  Serious: Yes (Other)
  Sender: FDA-Public Use
  Company Number: TR-LUNDBECK-DKLU3068984

PATIENT
  Age: 20 Year
  Sex: Female

DRUGS (1)
  1. CIPRALEX [Interacting]
     Active Substance: ESCITALOPRAM OXALATE
     Indication: Anxiety
     Route: 065
     Dates: start: 2008, end: 2008

REACTIONS (3)
  - Altered state of consciousness [Recovered/Resolved]
  - Alcohol interaction [Recovered/Resolved]
  - Amnesia [Recovered/Resolved]

NARRATIVE: CASE EVENT DATE: 20080101
